FAERS Safety Report 19098275 (Version 1)
Quarter: 2021Q2

REPORT INFORMATION
  Report Type: Spontaneous
  Country: ES (occurrence: ES)
  Receive Date: 20210406
  Receipt Date: 20210406
  Transmission Date: 20210717
  Serious: Yes (Other)
  Sender: FDA-Public Use
  Company Number: ES-MYLANLABS-2021M1019850

PATIENT
  Age: 50 Year
  Sex: Male

DRUGS (3)
  1. LEPONEX 25 MG [Suspect]
     Active Substance: CLOZAPINE
     Indication: SCHIZOPHRENIA
     Dosage: 22 YEARS BEFORE
  2. LEPONEX [Suspect]
     Active Substance: CLOZAPINE
     Indication: SCHIZOPHRENIA
     Dosage: UP TO 200MG/DAY
     Dates: start: 2021
  3. LEPONEX 25 MG [Suspect]
     Active Substance: CLOZAPINE
     Dosage: REDUCED THE DOSAGE IN HALF FOR 2 WEEKS
     Dates: end: 2021

REACTIONS (3)
  - Prescription drug used without a prescription [Unknown]
  - Metabolic syndrome [Recovering/Resolving]
  - Hallucination, auditory [Recovering/Resolving]

NARRATIVE: CASE EVENT DATE: 2021
